FAERS Safety Report 17347016 (Version 1)
Quarter: 2020Q1

REPORT INFORMATION
  Report Type: Report from Study
  Country: US (occurrence: US)
  Receive Date: 20200129
  Receipt Date: 20200129
  Transmission Date: 20200409
  Serious: No
  Sender: FDA-Public Use
  Company Number: US-EXELIXIS-CABO-19022380

PATIENT
  Sex: Male

DRUGS (2)
  1. CABOMETYX [Suspect]
     Active Substance: CABOZANTINIB S-MALATE
     Indication: RENAL CANCER
     Dosage: 60 MG, UNK
     Dates: start: 20190504, end: 20190515
  2. CABOMETYX [Suspect]
     Active Substance: CABOZANTINIB S-MALATE
     Dosage: 60 MG, QOD (4PM W/O FOOD)
     Dates: start: 20190518

REACTIONS (4)
  - Cold sweat [Unknown]
  - Constipation [Unknown]
  - Sputum retention [Unknown]
  - Mouth breathing [Unknown]
